FAERS Safety Report 9861676 (Version 1)
Quarter: 2014Q1

REPORT INFORMATION
  Report Type: Spontaneous
  Country: US (occurrence: None)
  Receive Date: 20140131
  Receipt Date: 20140131
  Transmission Date: 20141002
  Serious: Yes (Disabling)
  Sender: FDA-Public Use
  Company Number: None

PATIENT
  Age: 79 Year
  Sex: Female
  Weight: 70.76 kg

DRUGS (7)
  1. METHYEPREDNISOLON [Suspect]
     Indication: POST PROCEDURAL COMPLICATION
     Route: 048
     Dates: start: 20121213, end: 20121215
  2. METHYEPREDNISOLON [Suspect]
     Indication: SWELLING
     Route: 048
     Dates: start: 20121213, end: 20121215
  3. ASPIRIN [Concomitant]
  4. LA-CITVATE [Concomitant]
  5. D3 [Concomitant]
  6. MULTIVITES [Concomitant]
  7. FISHOIL [Concomitant]

REACTIONS (2)
  - Flushing [None]
  - Blood pressure increased [None]
